FAERS Safety Report 19894950 (Version 1)
Quarter: 2021Q3

REPORT INFORMATION
  Report Type: Spontaneous
  Country: FR (occurrence: FR)
  Receive Date: 20210929
  Receipt Date: 20210929
  Transmission Date: 20211014
  Serious: Yes (Hospitalization)
  Sender: FDA-Public Use
  Company Number: ALC2021FR005393

PATIENT

DRUGS (1)
  1. ATROPINE. [Suspect]
     Active Substance: ATROPINE
     Indication: EYE ULCER
     Dosage: 1 DRP, Q12H
     Route: 047
     Dates: start: 20210826, end: 20210826

REACTIONS (1)
  - Anticholinergic syndrome [Recovered/Resolved]

NARRATIVE: CASE EVENT DATE: 20210826
